FAERS Safety Report 17613039 (Version 1)
Quarter: 2020Q2

REPORT INFORMATION
  Report Type: Spontaneous
  Country: CA (occurrence: CA)
  Receive Date: 20200401
  Receipt Date: 20200401
  Transmission Date: 20200713
  Serious: Yes (Hospitalization)
  Sender: FDA-Public Use
  Company Number: NVSC2020CA087706

PATIENT
  Age: 42 Year
  Sex: Female

DRUGS (2)
  1. TYKERB [Suspect]
     Active Substance: LAPATINIB DITOSYLATE
     Indication: BREAST CANCER METASTATIC
     Dosage: 1250 MG, UNKNOWN
     Route: 048
  2. XELODA [Suspect]
     Active Substance: CAPECITABINE
     Indication: PRODUCT USED FOR UNKNOWN INDICATION
     Route: 065

REACTIONS (12)
  - Flatulence [Unknown]
  - Malignant neoplasm progression [Unknown]
  - Breast cancer metastatic [Unknown]
  - Jaundice [Unknown]
  - Pancreatic disorder [Unknown]
  - Hepatic enzyme decreased [Unknown]
  - Diarrhoea [Unknown]
  - Vulvovaginal discomfort [Unknown]
  - Bile duct obstruction [Unknown]
  - Liver disorder [Unknown]
  - Gallbladder disorder [Unknown]
  - Chromaturia [Unknown]
